FAERS Safety Report 12110009 (Version 1)
Quarter: 2016Q1

REPORT INFORMATION
  Report Type: Report from Study
  Country: TR (occurrence: TR)
  Receive Date: 20160224
  Receipt Date: 20160224
  Transmission Date: 20160526
  Serious: Yes (Other)
  Sender: FDA-Public Use
  Company Number: TR-BAYER-2016-032825

PATIENT
  Age: 7 Year
  Sex: Female

DRUGS (1)
  1. ASA [Suspect]
     Active Substance: ASPIRIN
     Indication: DRUG PROVOCATION TEST

REACTIONS (1)
  - Angioedema [None]
